FAERS Safety Report 25068631 (Version 2)
Quarter: 2025Q1

REPORT INFORMATION
  Report Type: Spontaneous
  Country: AR (occurrence: AR)
  Receive Date: 20250312
  Receipt Date: 20250324
  Transmission Date: 20250409
  Serious: Yes (Death, Other)
  Sender: PFIZER
  Company Number: AR-PFIZER INC-202500054523

PATIENT
  Age: 32 Year
  Sex: Male

DRUGS (4)
  1. BRAFTOVI [Suspect]
     Active Substance: ENCORAFENIB
     Indication: BRAF gene mutation
     Dosage: 450 MG, DAILY
     Dates: start: 20240609
  2. BRAFTOVI [Suspect]
     Active Substance: ENCORAFENIB
     Indication: Metastatic malignant melanoma
  3. MEKTOVI [Suspect]
     Active Substance: BINIMETINIB
     Indication: BRAF gene mutation
     Dosage: 45 MG, DAILY
  4. MEKTOVI [Suspect]
     Active Substance: BINIMETINIB
     Indication: Metastatic malignant melanoma

REACTIONS (4)
  - Death [Fatal]
  - Loss of consciousness [Unknown]
  - Dysphagia [Unknown]
  - Off label use [Unknown]

NARRATIVE: CASE EVENT DATE: 20250314
